FAERS Safety Report 11757516 (Version 1)
Quarter: 2015Q4

REPORT INFORMATION
  Report Type: Spontaneous
  Country: SE (occurrence: SE)
  Receive Date: 20151120
  Receipt Date: 20151120
  Transmission Date: 20160304
  Serious: Yes (Other)
  Sender: FDA-Public Use
  Company Number: SE-ACTAVIS-2015-24748

PATIENT
  Age: 65 Year
  Sex: Female

DRUGS (1)
  1. OMEPRAZOL ACTAVIS [Suspect]
     Active Substance: OMEPRAZOLE
     Indication: PRODUCT USED FOR UNKNOWN INDICATION
     Dosage: UNK UNK, UNKNOWN
     Route: 065

REACTIONS (20)
  - Oedema peripheral [Unknown]
  - Constipation [Unknown]
  - Dry mouth [Unknown]
  - Abdominal pain [Unknown]
  - Skin discolouration [Unknown]
  - Vomiting [Unknown]
  - Formication [Unknown]
  - Fracture [Unknown]
  - Fatigue [Unknown]
  - Haemosiderosis [Unknown]
  - Oedema [Unknown]
  - Polyp [Unknown]
  - Stasis dermatitis [Unknown]
  - Dizziness [Unknown]
  - Tongue fungal infection [Unknown]
  - Flatulence [Unknown]
  - Nausea [Unknown]
  - Dysgeusia [Unknown]
  - Myalgia [Unknown]
  - Arthralgia [Unknown]

NARRATIVE: CASE EVENT DATE: 201211
